FAERS Safety Report 7508957-7 (Version None)
Quarter: 2011Q2

REPORT INFORMATION
  Report Type: 
  Country: None (occurrence: None)
  Receive Date: 20110527
  Receipt Date: 20110524
  Transmission Date: 20111010
  Serious: Yes (Congenital Anomaly)
  Sender: FDA-Public Use
  Company Number: US-ROXANE LABORATORIES, INC.-2011-RO-00709RO

PATIENT
  Sex: Female

DRUGS (1)
  1. METHOTREXATE [Suspect]
     Indication: DRUG EXPOSURE DURING PREGNANCY
     Route: 064

REACTIONS (8)
  - INTESTINAL MALROTATION [None]
  - CONGENITAL HYDRONEPHROSIS [None]
  - VENTRICULAR SEPTAL DEFECT [None]
  - CONGENITAL PULMONARY VALVE ATRESIA [None]
  - EAR MALFORMATION [None]
  - MULTIPLE CONGENITAL ABNORMALITIES [None]
  - CONGENITAL ARTERIAL MALFORMATION [None]
  - CONGENITAL CYSTIC KIDNEY DISEASE [None]
